FAERS Safety Report 6274758-3 (Version None)
Quarter: 2009Q3

REPORT INFORMATION
  Report Type: 
  Country: None (occurrence: None)
  Receive Date: 20090717
  Receipt Date: 20090709
  Transmission Date: 20100115
  Serious: Yes (Other)
  Sender: FDA-Public Use
  Company Number: CHPA2009US15102

PATIENT
  Age: 29 Year
  Sex: Female
  Weight: 59 kg

DRUGS (5)
  1. TRANSDERM SCOP [Suspect]
     Indication: DIZZINESS
     Dosage: 1 PATCH FOR 4-5 DAYS, TRANSDERMAL
     Route: 062
     Dates: start: 20050101, end: 20090713
  2. TRANSDERM SCOP [Suspect]
     Indication: NAUSEA
     Dosage: 1 PATCH FOR 4-5 DAYS, TRANSDERMAL
     Route: 062
     Dates: start: 20050101, end: 20090713
  3. TRANSDERM SCOP [Suspect]
     Indication: VOMITING
     Dosage: 1 PATCH FOR 4-5 DAYS, TRANSDERMAL
     Route: 062
     Dates: start: 20050101, end: 20090713
  4. IMITREX CERENEX (SUMATRIPTAN SUCCINATE) [Concomitant]
  5. SUBOXONE [Concomitant]

REACTIONS (6)
  - ANAEMIA [None]
  - CHEST PAIN [None]
  - DYSPNOEA [None]
  - INAPPROPRIATE SCHEDULE OF DRUG ADMINISTRATION [None]
  - RASH MACULAR [None]
  - RED BLOOD CELL COUNT DECREASED [None]
